FAERS Safety Report 6199352-4 (Version None)
Quarter: 2009Q2

REPORT INFORMATION
  Report Type: 
  Country: None (occurrence: None)
  Receive Date: 20090519
  Receipt Date: 20090505
  Transmission Date: 20091009
  Serious: Yes (Hospitalization)
  Sender: FDA-Public Use
  Company Number: BR-1169485

PATIENT
  Age: 63 Year
  Sex: Female

DRUGS (1)
  1. TRAVATAN [Suspect]
     Indication: GLAUCOMA
     Dosage: 1 GTT OU OPHTHALMIC
     Route: 047
     Dates: start: 20090427, end: 20090427

REACTIONS (6)
  - DYSGEUSIA [None]
  - HYPERTENSION [None]
  - MUSCULAR WEAKNESS [None]
  - PHARYNGEAL OEDEMA [None]
  - PRESYNCOPE [None]
  - TACHYCARDIA [None]
